FAERS Safety Report 24133537 (Version 1)
Quarter: 2024Q3

REPORT INFORMATION
  Report Type: Spontaneous
  Country: US (occurrence: None)
  Receive Date: 20240724
  Receipt Date: 20240724
  Transmission Date: 20241017
  Serious: No
  Sender: Public
  Company Number: None

PATIENT
  Age: 42 Year
  Sex: Male
  Weight: 81 kg

DRUGS (4)
  1. FLUOXETINE [Suspect]
     Active Substance: FLUOXETINE HYDROCHLORIDE
     Indication: Depressed mood
     Dosage: OTHER QUANTITY : 1 CAPSULE(S);?
     Route: 048
     Dates: start: 20240626
  2. FLUOXETINE [Concomitant]
  3. Lo Loestrin [Concomitant]
  4. MELATONIN [Concomitant]

REACTIONS (5)
  - Dyspepsia [None]
  - Bruxism [None]
  - Middle insomnia [None]
  - Pain in jaw [None]
  - Headache [None]

NARRATIVE: CASE EVENT DATE: 20240724
